FAERS Safety Report 18860032 (Version 1)
Quarter: 2021Q1

REPORT INFORMATION
  Report Type: Spontaneous
  Country: US (occurrence: US)
  Receive Date: 20210208
  Receipt Date: 20210208
  Transmission Date: 20210420
  Serious: Yes (Death)
  Sender: FDA-Public Use
  Company Number: None

PATIENT
  Age: 70 Year
  Sex: Female
  Weight: 54 kg

DRUGS (1)
  1. TOBRAMYCIN 300MG/5ML INHALATION SOLUTION 56X5ML [Suspect]
     Active Substance: TOBRAMYCIN
     Indication: BRONCHIECTASIS
     Route: 048
     Dates: start: 20150731, end: 20210201

REACTIONS (1)
  - Death [None]

NARRATIVE: CASE EVENT DATE: 20210201
